FAERS Safety Report 5581891-8 (Version None)
Quarter: 2008Q1

REPORT INFORMATION
  Report Type: 
  Country: None (occurrence: None)
  Receive Date: 20080104
  Receipt Date: 20071228
  Transmission Date: 20080703
  Serious: Yes (Other)
  Sender: FDA-Public Use
  Company Number: US-PFIZER INC-2008000269

PATIENT
  Sex: Male
  Weight: 23.6 kg

DRUGS (3)
  1. ZYRTEC [Suspect]
     Indication: HYPERSENSITIVITY
     Dosage: TEXT:1.5 TEASPOON
     Dates: start: 20070409, end: 20070430
  2. ZYRTEC [Suspect]
     Indication: RHINORRHOEA
  3. ZYRTEC [Suspect]
     Indication: COUGH

REACTIONS (15)
  - ABNORMAL BEHAVIOUR [None]
  - AGGRESSION [None]
  - AUTISM [None]
  - COMMUNICATION DISORDER [None]
  - DEVELOPMENTAL DELAY [None]
  - DYSURIA [None]
  - ECHOLALIA [None]
  - HALLUCINATION [None]
  - HEADACHE [None]
  - LACK OF SPONTANEOUS SPEECH [None]
  - MUSCLE TWITCHING [None]
  - NIGHTMARE [None]
  - PSYCHOTIC DISORDER [None]
  - THINKING ABNORMAL [None]
  - VISUAL DISTURBANCE [None]
